FAERS Safety Report 7028450-8 (Version None)
Quarter: 2010Q4

REPORT INFORMATION
  Report Type: 
  Country: None (occurrence: None)
  Receive Date: 20101005
  Receipt Date: 20100922
  Transmission Date: 20110411
  Serious: Yes (Hospitalization)
  Sender: FDA-Public Use
  Company Number: GB-ROCHE-730583

PATIENT

DRUGS (8)
  1. BEVACIZUMAB [Suspect]
     Dosage: CYCLE NO: 4. THERAPY DELAYED.
     Route: 065
     Dates: start: 20100705
  2. FOLINIC ACID [Suspect]
     Dosage: CYCLE NO: 4.  THERAPY DELAYED.
     Route: 065
  3. FLUOROURACIL [Suspect]
     Dosage: CYCLE NO: 4.  THERAPY DELAYED.
     Route: 065
  4. OXALIPLATIN [Suspect]
     Dosage: CYCLE NO: 4.  THERAPY DELAYED.
     Route: 065
  5. MEROPENEM [Concomitant]
     Route: 042
     Dates: start: 20100920
  6. OMEPRAZOLE [Concomitant]
     Route: 048
     Dates: start: 20080101
  7. QUININE [Concomitant]
     Route: 048
     Dates: start: 20100701
  8. SODIUM FEREDETATE [Concomitant]
     Route: 048
     Dates: start: 20100401

REACTIONS (3)
  - DEVICE RELATED INFECTION [None]
  - SKIN NECROSIS [None]
  - WOUND SECRETION [None]
